FAERS Safety Report 4519227-3 (Version None)
Quarter: 2004Q4

REPORT INFORMATION
  Report Type: 
  Country: None (occurrence: None)
  Receive Date: 20041206
  Receipt Date: 20040226
  Transmission Date: 20050328
  Serious: No
  Sender: FDA-Public Use
  Company Number: US-BRISTOL-MYERS SQUIBB COMPANY-12517918

PATIENT
  Age: 37 Year
  Sex: Male

DRUGS (6)
  1. VIDEX EC [Suspect]
     Indication: HIV INFECTION
     Route: 048
     Dates: start: 20040106, end: 20040205
  2. SUSTIVA [Concomitant]
  3. VIREAD [Concomitant]
  4. ZITHROMAX [Concomitant]
  5. NORVIR [Concomitant]
  6. PHENERGAN [Concomitant]

REACTIONS (2)
  - MEDICATION ERROR [None]
  - OVERDOSE [None]
